FAERS Safety Report 8560135-9 (Version None)
Quarter: 2012Q2

REPORT INFORMATION
  Report Type: 
  Country: None (occurrence: None)
  Receive Date: 20120418
  Receipt Date: 20110512
  Transmission Date: 20120825
  Serious: Yes (Other)
  Sender: FDA-Public Use
  Company Number: PHHY2011US32427

PATIENT
  Sex: Female

DRUGS (1)
  1. DIOVAN [Suspect]
     Indication: HYPERTENSION
     Dosage: 160 MG, 1 DF DAILY, ORAL
     Route: 048
     Dates: start: 20110301, end: 20110301

REACTIONS (3)
  - OEDEMA [None]
  - DRUG INTOLERANCE [None]
  - BLOOD PRESSURE INCREASED [None]
